FAERS Safety Report 4973483-6 (Version None)
Quarter: 2006Q2

REPORT INFORMATION
  Report Type: 
  Country: None (occurrence: None)
  Receive Date: 20060413
  Receipt Date: 20060413
  Transmission Date: 20061013
  Serious: No
  Sender: FDA-Public Use
  Company Number: None

PATIENT
  Sex: Female

DRUGS (1)
  1. RISPERDAL [Suspect]
     Dosage: 2 MG BID PO
     Route: 048
     Dates: start: 20060328, end: 20060404

REACTIONS (1)
  - TARDIVE DYSKINESIA [None]
